FAERS Safety Report 8003358-X (Version None)
Quarter: 2011Q4

REPORT INFORMATION
  Report Type: 
  Country: None (occurrence: None)
  Receive Date: 20111222
  Receipt Date: 20111212
  Transmission Date: 20120403
  Serious: Yes (Hospitalization)
  Sender: FDA-Public Use
  Company Number: NL-MEDIMMUNE-MEDI-0012966

PATIENT
  Sex: Male
  Weight: 4.145 kg

DRUGS (5)
  1. LACTULOSE [Concomitant]
     Dates: start: 20110323
  2. SYNAGIS [Suspect]
     Route: 030
     Dates: start: 20110307, end: 20110307
  3. SYNAGIS [Suspect]
     Route: 030
     Dates: start: 20110111, end: 20110111
  4. ACETAMINOPHEN [Concomitant]
  5. ANTIBIOTICS [Concomitant]

REACTIONS (16)
  - SOMNOLENCE [None]
  - CONSTIPATION [None]
  - PNEUMONIA [None]
  - COUGH [None]
  - ORAL CANDIDIASIS [None]
  - URINE OUTPUT DECREASED [None]
  - DYSPNOEA [None]
  - PYREXIA [None]
  - INTERTRIGO [None]
  - ADENOVIRUS INFECTION [None]
  - TACHYCARDIA [None]
  - FUNGAL INFECTION [None]
  - INFANTILE SPITTING UP [None]
  - CANDIDIASIS [None]
  - STRABISMUS [None]
  - USE OF ACCESSORY RESPIRATORY MUSCLES [None]
